FAERS Safety Report 9319167 (Version 1)
Quarter: 2013Q2

REPORT INFORMATION
  Report Type: Spontaneous
  Country: IT (occurrence: IT)
  Receive Date: 20130530
  Receipt Date: 20130530
  Transmission Date: 20140414
  Serious: Yes (Other)
  Sender: FDA-Public Use
  Company Number: IT-MYLANLABS-2013S1010772

PATIENT
  Age: 54 Year
  Sex: Female

DRUGS (3)
  1. CLARITHROMYCIN [Suspect]
     Indication: OESOPHAGEAL CANDIDIASIS
     Route: 048
     Dates: start: 20130407, end: 20130409
  2. CARDIOASPIRIN [Concomitant]
     Indication: PRODUCT USED FOR UNKNOWN INDICATION
  3. INDERAL [Concomitant]
     Indication: PRODUCT USED FOR UNKNOWN INDICATION

REACTIONS (5)
  - Dyspnoea [Recovering/Resolving]
  - Ocular hyperaemia [Recovering/Resolving]
  - Pruritus [Recovering/Resolving]
  - Throat tightness [Recovering/Resolving]
  - Dysphonia [Recovering/Resolving]
